FAERS Safety Report 4504915-5 (Version None)
Quarter: 2004Q4

REPORT INFORMATION
  Report Type: 
  Country: None (occurrence: None)
  Receive Date: 20040928
  Receipt Date: 20040803
  Transmission Date: 20050328
  Serious: No
  Sender: FDA-Public Use
  Company Number: 04P-163-0269058-00

PATIENT
  Age: 59 Year
  Sex: Female
  Weight: 85.7298 kg

DRUGS (4)
  1. HUMIRA [Suspect]
     Indication: RHEUMATOID ARTHRITIS
     Dosage: 40 MG, 1 IN 2 WK, SUBCUTANEOUS
     Route: 058
     Dates: start: 20040301
  2. METHOTREXATE SODIUM [Concomitant]
  3. ALENDRONATE SODIUM [Concomitant]
  4. LANSOPRAZOLE [Concomitant]

REACTIONS (3)
  - ARTHROPOD BITE [None]
  - GENERALISED ERYTHEMA [None]
  - RASH GENERALISED [None]
